FAERS Safety Report 25539400 (Version 1)
Quarter: 2025Q3

REPORT INFORMATION
  Report Type: Spontaneous
  Country: CN (occurrence: CN)
  Receive Date: 20250710
  Receipt Date: 20250710
  Transmission Date: 20251020
  Serious: Yes (Life-Threatening, Other)
  Sender: BAYER HEALTHCARE PHARMACEUTICALS INC.
  Company Number: CN-BAYER-2025A090539

PATIENT
  Age: 81 Year
  Sex: Female

DRUGS (2)
  1. ULTRAVIST [Suspect]
     Active Substance: IOPROMIDE
     Indication: Angiogram cerebral
     Route: 041
     Dates: start: 20250702, end: 20250702
  2. ULTRAVIST [Suspect]
     Active Substance: IOPROMIDE
     Indication: Cerebral infarction

REACTIONS (5)
  - Renal impairment [Unknown]
  - Cardiac failure [Unknown]
  - Metabolic acidosis [Unknown]
  - Oedema peripheral [Unknown]
  - Oliguria [Unknown]

NARRATIVE: CASE EVENT DATE: 20250703
